FAERS Safety Report 9097961 (Version 1)
Quarter: 2013Q1

REPORT INFORMATION
  Report Type: Spontaneous
  Country: US (occurrence: US)
  Receive Date: 20130212
  Receipt Date: 20130212
  Transmission Date: 20140127
  Serious: No
  Sender: FDA-Public Use
  Company Number: US-PFIZER INC-2013051593

PATIENT
  Age: 43 Year
  Sex: Female
  Weight: 121 kg

DRUGS (5)
  1. NEURONTIN [Suspect]
     Indication: NEUROPATHY PERIPHERAL
     Dosage: 300 MG, AS NEEDED
     Dates: start: 2012
  2. NEURONTIN [Suspect]
     Dosage: 300 MG, 3X/DAY
     Dates: end: 201301
  3. METFORMIN [Concomitant]
     Indication: BLOOD GLUCOSE ABNORMAL
     Dosage: 850 MG, 2X/DAY
  4. LOPRESSOR [Concomitant]
     Indication: HYPERTENSION
     Dosage: 50 MG, 2X/DAY
  5. MAXZIDE [Concomitant]
     Indication: FLUID IMBALANCE
     Dosage: 25 MG, 1X/DAY

REACTIONS (3)
  - Drug ineffective [Unknown]
  - Dizziness [Unknown]
  - Hypoaesthesia [Recovered/Resolved]
